FAERS Safety Report 19144702 (Version 3)
Quarter: 2022Q1

REPORT INFORMATION
  Report Type: Report from Study
  Country: RU (occurrence: RU)
  Receive Date: 20210416
  Receipt Date: 20220309
  Transmission Date: 20220423
  Serious: Yes (Other)
  Sender: FDA-Public Use
  Company Number: RU-AUROBINDO-AUR-APL-2021-015566

PATIENT
  Sex: Female

DRUGS (4)
  1. LAMIVUDINE [Suspect]
     Active Substance: LAMIVUDINE
     Indication: HIV infection
     Dosage: 300 MILLIGRAM, DAILY, FIRST TRIMESTER
     Route: 048
     Dates: start: 20140620
  2. TIVICAY [Suspect]
     Active Substance: DOLUTEGRAVIR SODIUM
     Indication: HIV infection
     Dosage: 50 MILLIGRAM, DAILY, FIRST TRIMESTER
     Route: 048
     Dates: start: 20200804, end: 20210128
  3. NARLAPREVIR [Concomitant]
     Active Substance: NARLAPREVIR
     Indication: Product used for unknown indication
     Dosage: UNK, FIRST TRIMESTER
     Route: 065
  4. DACLATASVIR [Concomitant]
     Active Substance: DACLATASVIR
     Indication: Product used for unknown indication
     Dosage: UNK, FIRST TRIMESTER
     Route: 065

REACTIONS (2)
  - Abortion induced [Unknown]
  - Maternal exposure during pregnancy [Unknown]

NARRATIVE: CASE EVENT DATE: 20210208
